FAERS Safety Report 11231678 (Version 3)
Quarter: 2015Q3

REPORT INFORMATION
  Report Type: Spontaneous
  Country: JP (occurrence: JP)
  Receive Date: 20150701
  Receipt Date: 20150714
  Transmission Date: 20151125
  Serious: Yes (Other)
  Sender: FDA-Public Use
  Company Number: JP-009507513-1506JPN012704

PATIENT
  Age: 91 Year
  Sex: Female

DRUGS (7)
  1. CALBLOCK [Concomitant]
     Active Substance: AZELNIDIPINE
     Indication: HYPERTENSION
     Dosage: DAILY DOSAGE UNKNOWN
     Route: 048
     Dates: start: 201501
  2. MAGMITT [Concomitant]
     Active Substance: MAGNESIUM OXIDE
     Indication: CONSTIPATION
     Dosage: DAILY DOSAGE UNKNOWN
     Route: 048
     Dates: start: 201501
  3. BIOFERMIN (BACILLUS SUBTILIS (+) LACTOBACILLUS ACIDOPHILUS (+) STREPTO [Concomitant]
     Active Substance: BACILLUS SUBTILIS\LACTOBACILLUS ACIDOPHILUS\STREPTOCOCCUS FAECAIS
     Indication: GASTROINTESTINAL DISORDER THERAPY
     Dosage: DAILY DOSAGE UNKNOWN
     Route: 048
     Dates: start: 201501
  4. BELSOMRA [Suspect]
     Active Substance: SUVOREXANT
     Indication: INSOMNIA
     Dosage: 15 MG, QD
     Route: 048
     Dates: start: 20150604, end: 20150616
  5. ARGAMATE JELLY [Concomitant]
     Indication: BLOOD POTASSIUM ABNORMAL
     Dosage: DAILY DOSAGE UNKNOWN
     Route: 048
     Dates: start: 201502
  6. BELSOMRA [Suspect]
     Active Substance: SUVOREXANT
     Dosage: 15 MG, AS NEEDED WHEN SLEEPLESS
     Route: 048
     Dates: start: 20150617, end: 20150701
  7. URITOS [Concomitant]
     Active Substance: IMIDAFENACIN
     Indication: HYPERTONIC BLADDER
     Dosage: DAILY DOSAGE UNKNOWN
     Route: 048
     Dates: start: 201503

REACTIONS (3)
  - Suicidal ideation [Unknown]
  - Inappropriate schedule of drug administration [Unknown]
  - Nightmare [Unknown]

NARRATIVE: CASE EVENT DATE: 201506
